FAERS Safety Report 16360976 (Version 2)
Quarter: 2019Q2

REPORT INFORMATION
  Report Type: Spontaneous
  Country: US (occurrence: US)
  Receive Date: 20190528
  Receipt Date: 20190623
  Transmission Date: 20190711
  Serious: Yes (Other)
  Sender: FDA-Public Use
  Company Number: US-JNJFOC-20190519955

PATIENT
  Age: 52 Year
  Sex: Male
  Weight: 157.54 kg

DRUGS (3)
  1. DURAGESIC [Suspect]
     Active Substance: FENTANYL
     Indication: ARTHRITIS
     Route: 062
     Dates: start: 1999
  2. ENDOCET [Concomitant]
     Active Substance: ACETAMINOPHEN\OXYCODONE HYDROCHLORIDE
     Route: 065
  3. DURAGESIC [Suspect]
     Active Substance: FENTANYL
     Indication: ADDISON^S DISEASE
     Route: 062
     Dates: start: 1999

REACTIONS (7)
  - Product complaint [Unknown]
  - Fall [Unknown]
  - Underdose [Unknown]
  - Knee operation [Unknown]
  - Wrong technique in product usage process [Unknown]
  - Arthritis [Unknown]
  - Limb injury [Unknown]

NARRATIVE: CASE EVENT DATE: 2018
